FAERS Safety Report 13406789 (Version 1)
Quarter: 2017Q2

REPORT INFORMATION
  Report Type: Spontaneous
  Country: US (occurrence: US)
  Receive Date: 20170405
  Receipt Date: 20170405
  Transmission Date: 20170830
  Serious: No
  Sender: FDA-Public Use
  Company Number: US-EAGLE PHARMACEUTICALS, INC.-US-2016EAG000733

PATIENT

DRUGS (6)
  1. BENDEKA [Suspect]
     Active Substance: BENDAMUSTINE HYDROCHLORIDE
     Indication: B-CELL LYMPHOMA
     Dosage: 180 MG (CYCLE 1, DILUTED WITH 250 MLS OF NACL AND ADMINISTERED OVER 60 MINUTES)
     Route: 042
     Dates: start: 2016
  2. PEPCID [Concomitant]
     Active Substance: FAMOTIDINE
     Indication: PREMEDICATION
     Dosage: UNK
  3. DEXAMETHASONE. [Concomitant]
     Active Substance: DEXAMETHASONE
     Indication: PREMEDICATION
     Dosage: UNK
  4. BENADRYL [Concomitant]
     Active Substance: DIPHENHYDRAMINE HYDROCHLORIDE
     Indication: PREMEDICATION
     Dosage: UNK
  5. ZOFRAN [Concomitant]
     Active Substance: ONDANSETRON HYDROCHLORIDE
     Indication: PREMEDICATION
     Dosage: UNK
  6. RITUXAN [Concomitant]
     Active Substance: RITUXIMAB
     Indication: B-CELL LYMPHOMA
     Dosage: UNK, (DILUTED WITH 500 MLS UNKNOWN DILUENT)
     Route: 042

REACTIONS (2)
  - Product preparation error [Recovered/Resolved]
  - Incorrect drug administration rate [Recovered/Resolved]

NARRATIVE: CASE EVENT DATE: 2016
